FAERS Safety Report 5724015-6 (Version None)
Quarter: 2008Q2

REPORT INFORMATION
  Report Type: 
  Country: None (occurrence: None)
  Receive Date: 20080430
  Receipt Date: 20080422
  Transmission Date: 20081010
  Serious: Yes (Death, Hospitalization)
  Sender: FDA-Public Use
  Company Number: JP-ASTRAZENECA-2008SE01317

PATIENT
  Age: 83 Year
  Sex: Male
  Weight: 46 kg

DRUGS (6)
  1. BLOPRESS [Suspect]
     Indication: CARDIAC FAILURE CHRONIC
     Route: 048
     Dates: start: 20070417, end: 20080120
  2. ARTIST [Concomitant]
     Indication: CARDIAC FAILURE CHRONIC
     Route: 048
     Dates: start: 20070413, end: 20071026
  3. DIART [Concomitant]
     Indication: CARDIAC FAILURE CHRONIC
     Route: 048
     Dates: start: 20070413, end: 20071026
  4. ALDACTONE [Concomitant]
     Indication: CARDIAC FAILURE CHRONIC
     Route: 048
     Dates: start: 20070413, end: 20071026
  5. GAMOFA [Concomitant]
     Indication: GASTRIC CANCER
     Route: 048
     Dates: end: 20080201
  6. PHENLASE-S [Concomitant]
     Indication: GASTRIC CANCER
     Route: 048
     Dates: end: 20080201

REACTIONS (3)
  - ANAEMIA [None]
  - CARDIAC FAILURE CHRONIC [None]
  - RENAL IMPAIRMENT [None]
